FAERS Safety Report 7240674-3 (Version None)
Quarter: 2011Q1

REPORT INFORMATION
  Report Type: 
  Country: None (occurrence: None)
  Receive Date: 20110124
  Receipt Date: 20100819
  Transmission Date: 20110831
  Serious: No
  Sender: FDA-Public Use
  Company Number: US-KINGPHARMUSA00001-K201001064

PATIENT
  Age: 11 Year
  Sex: Female

DRUGS (1)
  1. EPIPEN JR. [Suspect]
     Dosage: 0.15 MG, SINGLE
     Dates: start: 20100819, end: 20100819

REACTIONS (6)
  - EXPIRED DRUG ADMINISTERED [None]
  - INJECTION SITE PAIN [None]
  - ACCIDENTAL EXPOSURE [None]
  - SKELETAL INJURY [None]
  - INJECTION SITE SWELLING [None]
  - INJECTION SITE COLDNESS [None]
